FAERS Safety Report 16751208 (Version 1)
Quarter: 2019Q3

REPORT INFORMATION
  Report Type: Spontaneous
  Country: JP (occurrence: JP)
  Receive Date: 20190828
  Receipt Date: 20190828
  Transmission Date: 20191005
  Serious: Yes (Other)
  Sender: FDA-Public Use
  Company Number: JP-PFIZER INC-2019363555

PATIENT
  Age: 71 Year
  Sex: Male
  Weight: 65 kg

DRUGS (3)
  1. ELCATONINE [Concomitant]
     Indication: BACTERIAL INFECTION
     Dosage: UNK
     Dates: start: 2019
  2. ZOLEDRONIC ACID [Concomitant]
     Active Substance: ZOLEDRONIC ACID
     Indication: BACTERIAL INFECTION
     Dosage: 4 MG, UNK
     Dates: start: 2019
  3. CEFTRIAXONE SODIUM. [Suspect]
     Active Substance: CEFTRIAXONE SODIUM
     Indication: BACTERIAL INFECTION
     Dosage: 1 G, 2X/DAY
     Dates: start: 2019

REACTIONS (3)
  - Pulmonary calcification [Recovering/Resolving]
  - Organising pneumonia [Unknown]
  - Alkalosis [Unknown]

NARRATIVE: CASE EVENT DATE: 2019
